FAERS Safety Report 4922493-3 (Version None)
Quarter: 2006Q1

REPORT INFORMATION
  Report Type: 
  Country: None (occurrence: None)
  Receive Date: 20060224
  Receipt Date: 20060213
  Transmission Date: 20060701
  Serious: Yes (Hospitalization)
  Sender: FDA-Public Use
  Company Number: US-ROCHE-435944

PATIENT
  Age: 53 Year
  Sex: Male

DRUGS (6)
  1. PEG-INTERFERON A-2A (RO 25-8310) [Suspect]
     Route: 058
     Dates: start: 20030128, end: 20031017
  2. RIBAVIRIN [Concomitant]
     Route: 048
     Dates: start: 20030128, end: 20031017
  3. INSULIN [Concomitant]
  4. ABACAVIR [Concomitant]
  5. LAMIVUDINE [Concomitant]
  6. EFAVIRENZ [Concomitant]

REACTIONS (11)
  - ACTIVATED PARTIAL THROMBOPLASTIN TIME SHORTENED [None]
  - ANAEMIA [None]
  - COAGULOPATHY [None]
  - COUGH [None]
  - CYANOSIS [None]
  - FACTOR VIII INHIBITION [None]
  - HAEMATURIA [None]
  - MUSCLE HAEMORRHAGE [None]
  - MUSCLE SWELLING [None]
  - MYALGIA [None]
  - OEDEMA PERIPHERAL [None]
